FAERS Safety Report 6655211-1 (Version None)
Quarter: 2010Q1

REPORT INFORMATION
  Report Type: 
  Country: None (occurrence: None)
  Receive Date: 20100324
  Receipt Date: 20100308
  Transmission Date: 20100710
  Serious: Yes (Hospitalization, Other)
  Sender: FDA-Public Use
  Company Number: JPI-P-009964

PATIENT
  Age: 37 Year
  Sex: Male
  Weight: 190 kg

DRUGS (7)
  1. XYREM [Suspect]
     Indication: SLEEP DISORDER
     Dosage: 4.5 GM (2.25 GM, 2 IN 1 D), ORAL; 9 GM (4.5 GM, 2 IN 1 D), ORAL
     Route: 048
     Dates: start: 20060913
  2. DESMOPRESSIN ACETATE [Suspect]
     Indication: DIABETES INSIPIDUS
     Dosage: (LOWEST POSSIBLE DOSE), INTRA-NASAL
     Route: 045
     Dates: start: 20100301
  3. MILNACIPRAN HYDROCHLORIDE [Concomitant]
  4. DEXTROAMPHETAMINE [Concomitant]
  5. RAMELTEON [Concomitant]
  6. METHYLPHENIDATE [Concomitant]
  7. PROPOXYPHENE HCL [Concomitant]

REACTIONS (7)
  - CONVULSION [None]
  - DIABETES INSIPIDUS [None]
  - ELECTROLYTE IMBALANCE [None]
  - HYPONATRAEMIA [None]
  - MEMORY IMPAIRMENT [None]
  - UNRESPONSIVE TO STIMULI [None]
  - WATER INTOXICATION [None]
